FAERS Safety Report 15756683 (Version 1)
Quarter: 2018Q4

REPORT INFORMATION
  Report Type: Spontaneous
  Country: US (occurrence: US)
  Receive Date: 20181223
  Receipt Date: 20181223
  Transmission Date: 20190205
  Serious: Yes (Other)
  Sender: FDA-Public Use
  Company Number: None

PATIENT
  Age: 78 Year
  Sex: Female
  Weight: 81 kg

DRUGS (3)
  1. LISINOPRIL (20MG) [Suspect]
     Active Substance: LISINOPRIL
     Indication: HYPERTENSION
     Dosage: ?          QUANTITY:1 TABLET(S);?
     Route: 048
     Dates: start: 20181014, end: 20181219
  2. TRAVATAN Z [Concomitant]
     Active Substance: TRAVOPROST
  3. CHELATED MAGNESIUM [Concomitant]

REACTIONS (7)
  - Pain [None]
  - Feeling cold [None]
  - Diarrhoea [None]
  - Faeces soft [None]
  - Flatulence [None]
  - Defaecation urgency [None]
  - Middle insomnia [None]

NARRATIVE: CASE EVENT DATE: 20181218
